FAERS Safety Report 9099000 (Version 1)
Quarter: 2013Q1

REPORT INFORMATION
  Report Type: Spontaneous
  Country: US (occurrence: US)
  Receive Date: 20130214
  Receipt Date: 20130214
  Transmission Date: 20140127
  Serious: Yes (Hospitalization)
  Sender: FDA-Public Use
  Company Number: US-ELI_LILLY_AND_COMPANY-US201205010128

PATIENT
  Age: 72 Year
  Sex: Male

DRUGS (15)
  1. FORTEO [Suspect]
     Indication: OSTEOPOROSIS
     Dosage: 20 UG, QD
     Dates: start: 20120524
  2. FORTEO [Suspect]
     Dosage: 20 UG, QD
  3. FLOMAX [Concomitant]
     Dosage: 0.4 MG, BID
  4. CYMBALTA [Concomitant]
     Dosage: 60 MG, QD
  5. LIPITOR [Concomitant]
     Dosage: 40 MG, QD
  6. OMEPRAZOLE [Concomitant]
     Dosage: 40 MG, UNK
  7. AMANTADINE [Concomitant]
     Dosage: UNK
  8. LEVOTHYROXINE [Concomitant]
     Dosage: 25 UG, UNK
  9. MEGESTROL [Concomitant]
     Dosage: 1 DF, BID
  10. DOCUSATE [Concomitant]
     Dosage: 100 MG, BID
  11. CALCIUM WITH VITAMIN D [Concomitant]
     Dosage: UNK
  12. CHOLECALCIFEROL [Concomitant]
     Dosage: UNK
  13. CARBIDOPA [Concomitant]
     Dosage: UNK
  14. GABAPENTIN [Concomitant]
     Dosage: 100 MG, UNK
  15. NOVOLIN [Concomitant]
     Dosage: UNK

REACTIONS (6)
  - Cerebrovascular accident [Recovering/Resolving]
  - Herpes zoster [Unknown]
  - Headache [Not Recovered/Not Resolved]
  - Urinary tract infection [Unknown]
  - Dementia with Lewy bodies [Unknown]
  - Dementia Alzheimer^s type [Unknown]
